FAERS Safety Report 7087310-7 (Version None)
Quarter: 2010Q4

REPORT INFORMATION
  Report Type: 
  Country: None (occurrence: None)
  Receive Date: 20101108
  Receipt Date: 20101025
  Transmission Date: 20110411
  Serious: Yes (Hospitalization)
  Sender: FDA-Public Use
  Company Number: US-ELI_LILLY_AND_COMPANY-US201010001273

PATIENT
  Age: 63 Year
  Sex: Male
  Weight: 78.4 kg

DRUGS (10)
  1. GEMCITABINE HCL [Suspect]
     Indication: RENAL CELL CARCINOMA
     Dosage: 1000 MG/M2, UNK
     Dates: start: 20100713, end: 20100824
  2. SUNITINIB MALATE [Suspect]
     Indication: RENAL CELL CARCINOMA
     Dosage: 37.5 MG, DAILY (1/D)
     Dates: start: 20100713, end: 20100907
  3. COLACE [Concomitant]
  4. DEXAMETHASONE [Concomitant]
  5. LEVOTHROID [Concomitant]
  6. LISINOPRIL [Concomitant]
  7. LOVASTATIN [Concomitant]
  8. OXYCODONE [Concomitant]
  9. OXYCONTIN [Concomitant]
  10. REGLAN [Concomitant]

REACTIONS (3)
  - NAUSEA [None]
  - PAIN IN EXTREMITY [None]
  - VOMITING [None]
